FAERS Safety Report 16927207 (Version 2)
Quarter: 2020Q1

REPORT INFORMATION
  Report Type: Spontaneous
  Country: PT (occurrence: PT)
  Receive Date: 20191016
  Receipt Date: 20200311
  Transmission Date: 20200409
  Serious: Yes (Other)
  Sender: FDA-Public Use
  Company Number: NVSC2019PT003830

PATIENT
  Age: 68 Year
  Sex: Male

DRUGS (6)
  1. TRIPTORELIN [Concomitant]
     Active Substance: TRIPTORELIN
     Indication: METASTASES TO BONE
  2. ZOLEDRONIC ACID [Suspect]
     Active Substance: ZOLEDRONIC ACID
     Indication: PROSTATIC ADENOMA
     Dosage: 4 MG, Q4W (1 INTRAVENOUS ADMINISTRATION FOR 15 MINUTES, EVERY 4 WEEKS)
     Route: 042
     Dates: start: 201502
  3. TRIPTORELIN [Concomitant]
     Active Substance: TRIPTORELIN
     Indication: PROSTATIC ADENOMA
     Dosage: UNK
     Route: 065
  4. ZOLEDRONIC ACID [Suspect]
     Active Substance: ZOLEDRONIC ACID
     Indication: METASTASES TO BONE
  5. CYPROTERONE ACETATE [Concomitant]
     Active Substance: CYPROTERONE ACETATE
     Indication: PROSTATIC ADENOMA
     Dosage: UNK
     Route: 065
  6. CYPROTERONE ACETATE [Concomitant]
     Active Substance: CYPROTERONE ACETATE
     Indication: METASTASES TO BONE

REACTIONS (13)
  - Anaemia [Unknown]
  - Renal tubular acidosis [Recovering/Resolving]
  - Nephropathy toxic [Unknown]
  - Asthenia [Unknown]
  - Metabolic acidosis [Recovered/Resolved]
  - Diabetic nephropathy [Unknown]
  - Hypertensive nephropathy [Unknown]
  - Renal injury [Unknown]
  - Renal tubular dysfunction [Recovering/Resolving]
  - Renal tubular necrosis [Recovering/Resolving]
  - Decreased appetite [Unknown]
  - Fanconi syndrome [Recovered/Resolved]
  - Hypokalaemia [Unknown]

NARRATIVE: CASE EVENT DATE: 201604
